FAERS Safety Report 20695603 (Version 1)
Quarter: 2022Q2

REPORT INFORMATION
  Report Type: Spontaneous
  Country: US (occurrence: US)
  Receive Date: 20220411
  Receipt Date: 20220411
  Transmission Date: 20220721
  Serious: No
  Sender: FDA-Public Use
  Company Number: US-PFIZER INC-202100941913

PATIENT
  Age: 43 Year
  Sex: Female
  Weight: 69.85 kg

DRUGS (4)
  1. CHANTIX [Suspect]
     Active Substance: VARENICLINE TARTRATE
     Indication: Smoking cessation therapy
     Dosage: 0.5 MG, 2X/DAY (0.5MG TWICE DAILY)
     Dates: start: 20210716
  2. LOSARTAN POTASSIUM [Concomitant]
     Active Substance: LOSARTAN POTASSIUM
     Indication: Blood pressure measurement
     Dosage: 100 MG, 1X/DAY (ONCE DAILY)
  3. POTASSIUM CHLORIDE [Concomitant]
     Active Substance: POTASSIUM CHLORIDE
     Dosage: 10 MEQ, 2X/DAY (10MEQ TWICE A DAY)
  4. DULOXETINE HYDROCHLORIDE [Concomitant]
     Active Substance: DULOXETINE HYDROCHLORIDE
     Indication: Neuropathy peripheral
     Dosage: 30 MG, 1X/DAY  (30MG ONCE A DAY)

REACTIONS (4)
  - Recalled product administered [Unknown]
  - Vomiting [Recovered/Resolved]
  - Insomnia [Recovering/Resolving]
  - Feeling jittery [Not Recovered/Not Resolved]

NARRATIVE: CASE EVENT DATE: 20210716
